FAERS Safety Report 16722606 (Version 2)
Quarter: 2019Q3

REPORT INFORMATION
  Report Type: Report from Study
  Country: US (occurrence: US)
  Receive Date: 20190820
  Receipt Date: 20190923
  Transmission Date: 20191005
  Serious: Yes (Hospitalization, Other)
  Sender: FDA-Public Use
  Company Number: US-TESARO-2019-TSO02512-US

PATIENT
  Sex: Male

DRUGS (4)
  1. NIRAPARIB [Suspect]
     Active Substance: NIRAPARIB
     Indication: LUNG NEOPLASM MALIGNANT
     Dosage: 200 MG, HS WITHOUT FOOD
     Route: 048
     Dates: start: 20190726, end: 20190814
  2. NIRAPARIB [Suspect]
     Active Substance: NIRAPARIB
     Dosage: 100 MG, QHS WITHOUT FOOD
     Route: 048
  3. NIRAPARIB [Suspect]
     Active Substance: NIRAPARIB
     Dosage: 200 MG, QHS WITHOUT FOOD
     Route: 048
     Dates: start: 20190913
  4. NIRAPARIB [Suspect]
     Active Substance: NIRAPARIB
     Indication: BLADDER CANCER
     Dosage: 200 MG, QD
     Route: 048
     Dates: start: 20190707, end: 20190711

REACTIONS (6)
  - Memory impairment [Recovered/Resolved]
  - Pseudomonas infection [Not Recovered/Not Resolved]
  - Dizziness [Recovered/Resolved]
  - Tremor [Recovered/Resolved]
  - Fatigue [Recovered/Resolved]
  - Product use in unapproved indication [Unknown]
